FAERS Safety Report 10587448 (Version 2)
Quarter: 2014Q4

REPORT INFORMATION
  Report Type: Spontaneous
  Country: US (occurrence: US)
  Receive Date: 20141117
  Receipt Date: 20141126
  Transmission Date: 20150529
  Serious: No
  Sender: FDA-Public Use
  Company Number: US-PFIZER INC-2014311848

PATIENT
  Age: 50 Year
  Sex: Female
  Weight: 86 kg

DRUGS (1)
  1. TORISEL [Suspect]
     Active Substance: TEMSIROLIMUS
     Indication: METASTATIC RENAL CELL CARCINOMA
     Dosage: UNK, WEEKLY
     Route: 042
     Dates: start: 20110608, end: 20111104

REACTIONS (3)
  - Metastatic renal cell carcinoma [Unknown]
  - Disease progression [Unknown]
  - Pyrexia [Unknown]
